FAERS Safety Report 5915079-5 (Version None)
Quarter: 2008Q4

REPORT INFORMATION
  Report Type: 
  Country: None (occurrence: None)
  Receive Date: 20081010
  Receipt Date: 20081003
  Transmission Date: 20090506
  Serious: Yes (Hospitalization)
  Sender: FDA-Public Use
  Company Number: A0751233A

PATIENT
  Age: 55 Year
  Sex: Male
  Weight: 122.7 kg

DRUGS (1)
  1. AVANDIA [Suspect]
     Dosage: 8MG UNKNOWN
     Route: 048
     Dates: start: 20021002, end: 20031015

REACTIONS (6)
  - ARTERIOSCLEROSIS [None]
  - CARDIAC DISORDER [None]
  - CARDIAC FAILURE [None]
  - CONVULSION [None]
  - MYOCARDIAL INFARCTION [None]
  - RASH [None]
